FAERS Safety Report 6155830-5 (Version None)
Quarter: 2009Q2

REPORT INFORMATION
  Report Type: 
  Country: None (occurrence: None)
  Receive Date: 20090415
  Receipt Date: 20090406
  Transmission Date: 20091009
  Serious: Yes (Other)
  Sender: FDA-Public Use
  Company Number: GB-JNJFOC-20090301106

PATIENT
  Sex: Female

DRUGS (4)
  1. REMICADE [Suspect]
     Dosage: PREVIOUSLY ON INFLIXIMAB
     Route: 042
  2. REMICADE [Suspect]
     Indication: CROHN'S DISEASE
     Dosage: PREVIOUSLY ON INFLIXIMAB; DATES AND DOSE NOT PROVIDED
     Route: 042
  3. AZATHIOPRINE [Concomitant]
  4. PENTASA [Concomitant]

REACTIONS (1)
  - MENORRHAGIA [None]
